FAERS Safety Report 5101027-7 (Version None)
Quarter: 2006Q3

REPORT INFORMATION
  Report Type: 
  Country: None (occurrence: None)
  Receive Date: 20060731
  Receipt Date: 20060623
  Transmission Date: 20061208
  Serious: No
  Sender: FDA-Public Use
  Company Number: 2006PV016312

PATIENT
  Age: 70 Year
  Sex: Female
  Weight: 112.0385 kg

DRUGS (6)
  1. BYETTA [Suspect]
     Indication: DIABETES MELLITUS NON-INSULIN-DEPENDENT
     Dosage: SEE IMAGE
     Route: 058
     Dates: start: 20060524, end: 20060606
  2. BYETTA [Suspect]
     Indication: DIABETES MELLITUS NON-INSULIN-DEPENDENT
     Dosage: SEE IMAGE
     Route: 058
     Dates: start: 20060607
  3. METFORMIN HCL [Concomitant]
  4. ZOLOFT [Concomitant]
  5. XANAX [Concomitant]
  6. GLYBURIDE [Concomitant]

REACTIONS (3)
  - DRUG INEFFECTIVE [None]
  - INJECTION SITE URTICARIA [None]
  - PANIC ATTACK [None]
